FAERS Safety Report 20363325 (Version 1)
Quarter: 2022Q1

REPORT INFORMATION
  Report Type: Report from Study
  Country: US (occurrence: US)
  Receive Date: 20220121
  Receipt Date: 20220121
  Transmission Date: 20220423
  Serious: Yes (Other)
  Sender: FDA-Public Use
  Company Number: US-AMGEN-USASL2022005576

PATIENT
  Age: 27 Year
  Sex: Male

DRUGS (1)
  1. XGEVA [Suspect]
     Active Substance: DENOSUMAB
     Indication: Bone giant cell tumour malignant
     Route: 065

REACTIONS (6)
  - Oral neoplasm [Unknown]
  - Depression [Unknown]
  - Anxiety [Unknown]
  - Pain in jaw [Unknown]
  - Fatigue [Unknown]
  - Alopecia [Unknown]
